FAERS Safety Report 6102614-X (Version None)
Quarter: 2009Q1

REPORT INFORMATION
  Report Type: 
  Country: None (occurrence: None)
  Receive Date: 20090304
  Receipt Date: 20081003
  Transmission Date: 20090719
  Serious: No
  Sender: FDA-Public Use
  Company Number: A0751376A

PATIENT
  Age: 61 Year
  Sex: Male

DRUGS (1)
  1. REQUIP [Suspect]

REACTIONS (1)
  - DIZZINESS [None]
